FAERS Safety Report 10346237 (Version 1)
Quarter: 2014Q3

REPORT INFORMATION
  Report Type: Spontaneous
  Country: GB (occurrence: GB)
  Receive Date: 20140728
  Receipt Date: 20140728
  Transmission Date: 20150326
  Serious: Yes (Congenital Anomaly, Other)
  Sender: FDA-Public Use
  Company Number: GB-ABBVIE-14P-167-1265498-00

PATIENT
  Age: 1 Day

DRUGS (1)
  1. EPILIM [Suspect]
     Active Substance: VALPROATE SODIUM
     Indication: MATERNAL EXPOSURE TIMING UNSPECIFIED
     Route: 064

REACTIONS (15)
  - Balance disorder [Unknown]
  - Tonsillectomy [Unknown]
  - Hip deformity [Unknown]
  - Strabismus [Unknown]
  - Dyspraxia [Unknown]
  - Hearing impaired [Unknown]
  - Learning disorder [Unknown]
  - Mobility decreased [Unknown]
  - Motor dysfunction [Unknown]
  - Foot deformity [Unknown]
  - Gait disturbance [Unknown]
  - Foetal exposure during pregnancy [Unknown]
  - Foetal anticonvulsant syndrome [Unknown]
  - Speech disorder [Unknown]
  - General physical condition abnormal [Unknown]
